FAERS Safety Report 6742246-3 (Version None)
Quarter: 2010Q2

REPORT INFORMATION
  Report Type: 
  Country: None (occurrence: None)
  Receive Date: 20100526
  Receipt Date: 20100520
  Transmission Date: 20101027
  Serious: Yes (Other)
  Sender: FDA-Public Use
  Company Number: US-MERCK-1004USA02973

PATIENT
  Age: 87 Year
  Sex: Female

DRUGS (11)
  1. JANUVIA [Suspect]
     Route: 048
     Dates: start: 20080929
  2. PROVENTIL [Concomitant]
     Route: 055
  3. ASPIRIN [Concomitant]
     Route: 065
  4. AMARYL [Suspect]
     Route: 048
  5. GLIPIZIDE [Concomitant]
     Route: 065
  6. VITAMIN D (UNSPECIFIED) [Concomitant]
     Route: 065
  7. VITAMINS (UNSPECIFIED) [Concomitant]
     Route: 065
  8. INSULIN [Concomitant]
     Route: 065
     Dates: start: 20100302
  9. ACTONEL [Concomitant]
     Route: 065
  10. CRESTOR [Concomitant]
     Route: 065
  11. ZOLOFT [Concomitant]
     Route: 065

REACTIONS (7)
  - BLOOD GLUCOSE INCREASED [None]
  - CAROTID ARTERY DISEASE [None]
  - DRUG INEFFECTIVE [None]
  - FATIGUE [None]
  - MALAISE [None]
  - MYOCARDIAL INFARCTION [None]
  - TRANSIENT ISCHAEMIC ATTACK [None]
